FAERS Safety Report 7444282-0 (Version None)
Quarter: 2011Q2

REPORT INFORMATION
  Report Type: 
  Country: None (occurrence: None)
  Receive Date: 20110429
  Receipt Date: 20110415
  Transmission Date: 20111010
  Serious: Yes (Hospitalization)
  Sender: FDA-Public Use
  Company Number: US-JNJFOC-20110407254

PATIENT
  Sex: Male
  Weight: 99.79 kg

DRUGS (7)
  1. AMBIEN [Concomitant]
     Indication: SLEEP DISORDER THERAPY
     Dosage: DAILY BEDTIME
     Route: 048
  2. MERCAPTOPURINE [Concomitant]
     Indication: COLITIS ULCERATIVE
     Dosage: DAILY
     Route: 048
  3. REMICADE [Suspect]
     Indication: COLITIS ULCERATIVE
     Route: 042
  4. VALIUM [Concomitant]
     Indication: SLEEP DISORDER THERAPY
     Route: 048
  5. REMICADE [Suspect]
     Route: 042
  6. ASACOL [Concomitant]
     Indication: COLITIS ULCERATIVE
     Route: 048
  7. PREDNISONE [Concomitant]
     Indication: INFLAMMATION
     Route: 048

REACTIONS (5)
  - SINUS CONGESTION [None]
  - INFUSION RELATED REACTION [None]
  - DRUG INEFFECTIVE [None]
  - HOSPITALISATION [None]
  - FLUSHING [None]
